FAERS Safety Report 9940892 (Version 1)
Quarter: 2014Q1

REPORT INFORMATION
  Report Type: Spontaneous
  Country: US (occurrence: US)
  Receive Date: 20140303
  Receipt Date: 20140303
  Transmission Date: 20141002
  Serious: No
  Sender: FDA-Public Use
  Company Number: US-PFIZER INC-2014057989

PATIENT
  Age: 58 Year
  Sex: Female
  Weight: 63.49 kg

DRUGS (7)
  1. LYRICA [Suspect]
     Indication: POST HERPETIC NEURALGIA
     Dosage: 75 MG, 1X/DAY
     Dates: start: 20140122
  2. LYRICA [Suspect]
     Dosage: 75 MG, 2X/DAY
     Dates: start: 201401, end: 201402
  3. LYRICA [Suspect]
     Dosage: 75 MG, 1X/DAY
     Dates: start: 201402
  4. GABAPENTIN [Suspect]
     Indication: HERPES ZOSTER
     Dosage: 600 MG, 4X/DAY
     Dates: start: 20131222
  5. XANAX [Concomitant]
     Indication: ANXIETY
     Dosage: 0.5 MG, AS NEEDED
  6. SYNTHROID [Concomitant]
     Indication: THYROID DISORDER
     Dosage: 75 UG, 1X/DAY
  7. ELAVIL [Concomitant]
     Dosage: UNK

REACTIONS (2)
  - Increased appetite [Unknown]
  - Weight increased [Unknown]
